FAERS Safety Report 7187233-9 (Version None)
Quarter: 2010Q4

REPORT INFORMATION
  Report Type: 
  Country: None (occurrence: None)
  Receive Date: 20101222
  Receipt Date: 20101210
  Transmission Date: 20110411
  Serious: Yes (Hospitalization)
  Sender: FDA-Public Use
  Company Number: US-ELI_LILLY_AND_COMPANY-US201004005499

PATIENT
  Sex: Female

DRUGS (2)
  1. FORTEO [Suspect]
     Indication: OSTEOPOROSIS
     Dosage: 20 UG, DAILY (1/D)
  2. FORTEO [Suspect]
     Dosage: UNK, UNKNOWN

REACTIONS (39)
  - ASTHMA [None]
  - BACK DISORDER [None]
  - BLOOD CULTURE POSITIVE [None]
  - BRONCHITIS [None]
  - CARPAL TUNNEL SYNDROME [None]
  - CHEST PAIN [None]
  - CONTUSION [None]
  - COSTOCHONDRITIS [None]
  - COUGH [None]
  - DEHYDRATION [None]
  - DIARRHOEA HAEMORRHAGIC [None]
  - DISCOMFORT [None]
  - EPICONDYLITIS [None]
  - FALL [None]
  - FATIGUE [None]
  - FEELING COLD [None]
  - FLANK PAIN [None]
  - GLAUCOMA [None]
  - HEADACHE [None]
  - HEART RATE INCREASED [None]
  - HYPERTENSION [None]
  - HYPERTHYROIDISM [None]
  - INFLAMMATION [None]
  - INJECTION SITE HAEMATOMA [None]
  - INSOMNIA [None]
  - INTRAOCULAR PRESSURE INCREASED [None]
  - MELANOCYTIC NAEVUS [None]
  - MUSCLE SPASMS [None]
  - NAUSEA [None]
  - NEPHROLITHIASIS [None]
  - OSTEOCHONDRITIS [None]
  - PAIN [None]
  - PAIN IN EXTREMITY [None]
  - PLEURISY [None]
  - RIB FRACTURE [None]
  - SCAR PAIN [None]
  - SLEEP DISORDER [None]
  - URINARY TRACT INFECTION [None]
  - VIRAL INFECTION [None]
